FAERS Safety Report 6728469-8 (Version None)
Quarter: 2010Q2

REPORT INFORMATION
  Report Type: 
  Country: None (occurrence: None)
  Receive Date: 20100517
  Receipt Date: 20100506
  Transmission Date: 20101027
  Serious: Yes (Hospitalization, Other)
  Sender: FDA-Public Use
  Company Number: US-JNJFOC-20100503111

PATIENT
  Sex: Female

DRUGS (2)
  1. TYLENOL INFANT UNSPECIFIED [Suspect]
  2. TYLENOL INFANT UNSPECIFIED [Suspect]
     Indication: PAIN MANAGEMENT

REACTIONS (4)
  - ARTHRITIS BACTERIAL [None]
  - BACTERIAL INFECTION [None]
  - BACTERIAL SEPSIS [None]
  - PRODUCT QUALITY ISSUE [None]
